FAERS Safety Report 10874535 (Version 1)
Quarter: 2015Q1

REPORT INFORMATION
  Report Type: Spontaneous
  Country: US (occurrence: US)
  Receive Date: 20150227
  Receipt Date: 20150227
  Transmission Date: 20150721
  Serious: No
  Sender: FDA-Public Use
  Company Number: US-GLAXOSMITHKLINE-US2015GSK014468

PATIENT
  Age: 65 Year
  Sex: Female

DRUGS (2)
  1. ADVAIR DISKUS [Suspect]
     Active Substance: FLUTICASONE PROPIONATE\SALMETEROL XINAFOATE
     Indication: WHEEZING
  2. FLUCONAZOLE. [Suspect]
     Active Substance: FLUCONAZOLE

REACTIONS (11)
  - Oral pain [Not Recovered/Not Resolved]
  - Vocal cord disorder [Not Recovered/Not Resolved]
  - Candida infection [Not Recovered/Not Resolved]
  - Adverse drug reaction [Unknown]
  - Oropharyngeal pain [Not Recovered/Not Resolved]
  - Emotional distress [Not Recovered/Not Resolved]
  - Adverse event [Not Recovered/Not Resolved]
  - Fear [Not Recovered/Not Resolved]
  - Incorrect drug administration duration [Unknown]
  - Aphonia [Not Recovered/Not Resolved]
  - Nervousness [Not Recovered/Not Resolved]
